FAERS Safety Report 15928900 (Version 1)
Quarter: 2019Q1

REPORT INFORMATION
  Report Type: Spontaneous
  Country: FR (occurrence: FR)
  Receive Date: 20190206
  Receipt Date: 20190206
  Transmission Date: 20190417
  Serious: Yes (Other)
  Sender: FDA-Public Use
  Company Number: FR-MYLANLABS-2019M1010320

PATIENT
  Age: 47 Year
  Sex: Female

DRUGS (8)
  1. ADALIMUMAB [Suspect]
     Active Substance: ADALIMUMAB
     Dosage: 40 MILLIGRAM, BIWEEKLY
     Route: 065
  2. MYCOPHENOLATE MOFETIL. [Suspect]
     Active Substance: MYCOPHENOLATE MOFETIL
     Indication: COLITIS ULCERATIVE
     Dosage: UNK,DOSAGE FORM: UNSPECIFIED
     Route: 065
  3. ADALIMUMAB [Suspect]
     Active Substance: ADALIMUMAB
     Indication: COLITIS ULCERATIVE
     Dosage: 80 MILLIGRAM, BIWEEKLY,DOSAGE FORM: UNSPECIFIED,160/80/40 THEN 40 MG/2W, FOR 2 MONTHS
     Route: 065
  4. INFLIXIMAB RECOMBINANT [Suspect]
     Active Substance: INFLIXIMAB
     Dosage: 10 MILLIGRAM/KILOGRAM, (8 WEEK),DOSAGE FORM: LYOPHILIZED POWDER
     Route: 042
  5. ADALIMUMAB [Suspect]
     Active Substance: ADALIMUMAB
     Dosage: 160 MILLIGRAM, BIWEEKLY,DOSAGE FORM: UNSPECIFIED
     Route: 065
  6. TACROLIMUS. [Suspect]
     Active Substance: TACROLIMUS
     Indication: COLITIS ULCERATIVE
     Dosage: 4 MILLIGRAM, QD,DOSAGE FORM: UNSPECIFIED
     Route: 065
  7. INFLIXIMAB RECOMBINANT [Suspect]
     Active Substance: INFLIXIMAB
     Indication: COLITIS ULCERATIVE
     Dosage: 5 MILLIGRAM/KILOGRAM,(8 WEEK) WEEK,0, 2 AND 6 AND THEN EVERY 8 WEEKS THEN 10 MG/KG EVERY 8 WEEKS FOR
     Route: 042
  8. 5-ASA [Concomitant]
     Active Substance: MESALAMINE
     Indication: COLITIS ULCERATIVE
     Dosage: UNK,DOSAGE FORM: UNSPECIFIED
     Route: 065

REACTIONS (4)
  - Colorectal cancer [Unknown]
  - Cholangitis [Unknown]
  - Drug ineffective [Unknown]
  - Cytomegalovirus infection [Unknown]
